FAERS Safety Report 8854205 (Version 1)
Quarter: 2012Q4

REPORT INFORMATION
  Report Type: Spontaneous
  Country: US (occurrence: None)
  Receive Date: 20121019
  Receipt Date: 20121019
  Transmission Date: 20130627
  Serious: Yes (Disabling)
  Sender: FDA-Public Use
  Company Number: None

PATIENT
  Age: 64 Year
  Sex: Female
  Weight: 65.77 kg

DRUGS (1)
  1. OMEPRAZOLE [Suspect]
     Indication: SORE THROAT
     Dosage: One capsule
     Route: 048
     Dates: start: 20120713, end: 20120718

REACTIONS (3)
  - Dysgeusia [None]
  - Fluid retention [None]
  - Dysgeusia [None]
